FAERS Safety Report 12277902 (Version 1)
Quarter: 2016Q2

REPORT INFORMATION
  Report Type: Spontaneous
  Country: GB (occurrence: GB)
  Receive Date: 20160418
  Receipt Date: 20160418
  Transmission Date: 20160815
  Serious: Yes (Disabling)
  Sender: FDA-Public Use
  Company Number: GB-ELI_LILLY_AND_COMPANY-GB201604005307

PATIENT
  Age: 25 Year
  Sex: Male
  Weight: 55 kg

DRUGS (2)
  1. FLUOXETINE [Suspect]
     Active Substance: FLUOXETINE HYDROCHLORIDE
     Indication: PREMATURE EJACULATION
     Dosage: 2 DF, QD  (2 A DAY)
     Route: 065
     Dates: start: 20160118, end: 20160407
  2. DAPOXETINE [Concomitant]
     Indication: PRODUCT USED FOR UNKNOWN INDICATION
     Dosage: 1 DF, UNK ( 1-3 HOURS BEFORE INTERCOURSE)
     Dates: start: 20150909, end: 20160118

REACTIONS (2)
  - Off label use [Recovered/Resolved]
  - Tinnitus [Not Recovered/Not Resolved]

NARRATIVE: CASE EVENT DATE: 20160118
